FAERS Safety Report 24333341 (Version 3)
Quarter: 2024Q4

REPORT INFORMATION
  Report Type: Spontaneous
  Country: CA (occurrence: CA)
  Receive Date: 20240918
  Receipt Date: 20241016
  Transmission Date: 20250114
  Serious: Yes (Hospitalization, Other)
  Sender: SANDOZ
  Company Number: CA-002147023-NVSC2023CA005880

PATIENT
  Age: 66 Year
  Sex: Female

DRUGS (28)
  1. DEXAMETHASONE [Interacting]
     Active Substance: DEXAMETHASONE
     Indication: Immune thrombocytopenia
     Dosage: UNK
     Route: 065
  2. ELTROMBOPAG [Interacting]
     Active Substance: ELTROMBOPAG
     Dosage: 0.5 DOSAGE FORM, CYCLIC
     Route: 048
  3. ELTROMBOPAG [Interacting]
     Active Substance: ELTROMBOPAG
     Indication: Immune thrombocytopenia
     Dosage: 1 DOSAGE FORM (TABLET)
     Route: 048
  4. ELTROMBOPAG [Interacting]
     Active Substance: ELTROMBOPAG
     Dosage: 25 MG, QW
     Route: 048
  5. ELTROMBOPAG [Interacting]
     Active Substance: ELTROMBOPAG
     Dosage: 25 MG, QW
     Route: 048
  6. ELTROMBOPAG [Interacting]
     Active Substance: ELTROMBOPAG
     Dosage: 25 MG, QD
     Route: 048
  7. ELTROMBOPAG [Interacting]
     Active Substance: ELTROMBOPAG
     Dosage: 25 MG, QD
     Route: 048
  8. ELTROMBOPAG [Interacting]
     Active Substance: ELTROMBOPAG
     Dosage: 25 MG, QD
     Route: 048
  9. ELTROMBOPAG [Interacting]
     Active Substance: ELTROMBOPAG
     Dosage: 25 MG, QD
     Route: 048
  10. ELTROMBOPAG [Interacting]
     Active Substance: ELTROMBOPAG
     Dosage: 25 MG, QD
     Route: 048
  11. ELTROMBOPAG [Interacting]
     Active Substance: ELTROMBOPAG
     Dosage: 25 MG
     Route: 048
  12. ELTROMBOPAG [Interacting]
     Active Substance: ELTROMBOPAG
     Dosage: 25 MG
     Route: 048
  13. ELTROMBOPAG [Interacting]
     Active Substance: ELTROMBOPAG
     Dosage: 25 MG
     Route: 048
  14. ELTROMBOPAG [Interacting]
     Active Substance: ELTROMBOPAG
     Dosage: 25 MG
     Route: 048
  15. ELTROMBOPAG [Interacting]
     Active Substance: ELTROMBOPAG
     Dosage: 25 MG
     Route: 048
  16. ELTROMBOPAG [Interacting]
     Active Substance: ELTROMBOPAG
     Dosage: 25 MG
     Route: 048
  17. ELTROMBOPAG [Interacting]
     Active Substance: ELTROMBOPAG
     Dosage: UNK
     Route: 048
  18. ELTROMBOPAG [Interacting]
     Active Substance: ELTROMBOPAG
     Dosage: UNK
     Route: 048
  19. ELTROMBOPAG [Interacting]
     Active Substance: ELTROMBOPAG
     Dosage: UNK
     Route: 048
  20. ELTROMBOPAG [Interacting]
     Active Substance: ELTROMBOPAG
     Dosage: UNK
     Route: 048
  21. ELTROMBOPAG [Interacting]
     Active Substance: ELTROMBOPAG
     Dosage: UNK
     Route: 048
  22. ELTROMBOPAG [Interacting]
     Active Substance: ELTROMBOPAG
     Dosage: UNK
     Route: 048
  23. ELTROMBOPAG [Interacting]
     Active Substance: ELTROMBOPAG
     Dosage: UNK
     Route: 048
  24. ELTROMBOPAG [Interacting]
     Active Substance: ELTROMBOPAG
     Dosage: UNK
     Route: 048
  25. METHOTREXATE [Interacting]
     Active Substance: METHOTREXATE
     Indication: Rheumatoid arthritis
     Dosage: UNK
     Route: 065
  26. PREDNISONE [Interacting]
     Active Substance: PREDNISONE
     Indication: Immune thrombocytopenia
     Dosage: UNK
     Route: 065
  27. RITUXIMAB [Interacting]
     Active Substance: RITUXIMAB
     Indication: Immune thrombocytopenia
     Dosage: 370 MG/M2
     Route: 065
  28. RITUXIMAB [Interacting]
     Active Substance: RITUXIMAB
     Dosage: 375 MG/M2
     Route: 065

REACTIONS (12)
  - Mouth haemorrhage [Recovering/Resolving]
  - Drug interaction [Recovering/Resolving]
  - Platelet count decreased [Recovering/Resolving]
  - Platelet count increased [Recovering/Resolving]
  - COVID-19 [Recovering/Resolving]
  - SARS-CoV-2 test positive [Recovering/Resolving]
  - Fatigue [Recovering/Resolving]
  - Influenza [Recovering/Resolving]
  - Drug ineffective [Recovering/Resolving]
  - Product prescribing error [Recovering/Resolving]
  - Wrong technique in product usage process [Recovering/Resolving]
  - Off label use [Recovering/Resolving]
